FAERS Safety Report 9416766 (Version 1)
Quarter: 2013Q3

REPORT INFORMATION
  Report Type: Spontaneous
  Country: US (occurrence: US)
  Receive Date: 20130724
  Receipt Date: 20130724
  Transmission Date: 20140515
  Serious: No
  Sender: FDA-Public Use
  Company Number: US-GALDERMA-US-GDP-12415463

PATIENT
  Age: 69 Year
  Sex: Female

DRUGS (6)
  1. ORACEA (DOXYCYCLINE, USP) CAPSULES 40 MG [Suspect]
     Indication: LICHEN PLANUS
     Route: 048
     Dates: start: 20120119, end: 20121101
  2. ORACEA (DOXYCYCLINE, USP) CAPSULES 40 MG [Suspect]
     Dosage: 40 MG
     Route: 048
  3. TOLTERODINE [Concomitant]
  4. PRAVASTATINE [Concomitant]
     Dates: start: 201202
  5. COZAAR [Concomitant]
  6. BENADRYL [Concomitant]

REACTIONS (3)
  - Tinnitus [Not Recovered/Not Resolved]
  - Off label use [Not Recovered/Not Resolved]
  - Incorrect drug administration duration [Not Recovered/Not Resolved]
